FAERS Safety Report 21265615 (Version 1)
Quarter: 2022Q3

REPORT INFORMATION
  Report Type: Spontaneous
  Country: US (occurrence: US)
  Receive Date: 20220829
  Receipt Date: 20220829
  Transmission Date: 20221027
  Serious: Yes (Other)
  Sender: FDA-Public Use
  Company Number: US-ELI_LILLY_AND_COMPANY-US202208009118

PATIENT
  Age: 44 Year
  Sex: Male

DRUGS (1)
  1. HUMULIN 70/30 [Suspect]
     Active Substance: INSULIN HUMAN
     Indication: Diabetes mellitus
     Dosage: 30 U, TID
     Route: 065

REACTIONS (11)
  - Metastatic neoplasm [Unknown]
  - Intestinal polyp [Unknown]
  - Internal haemorrhage [Unknown]
  - Neuropathy peripheral [Unknown]
  - Balance disorder [Unknown]
  - Fall [Unknown]
  - Faeces soft [Unknown]
  - Fall [Unknown]
  - Peripheral swelling [Unknown]
  - Tibia fracture [Unknown]
  - Foot fracture [Unknown]

NARRATIVE: CASE EVENT DATE: 20180101
